FAERS Safety Report 7425893-5 (Version None)
Quarter: 2011Q2

REPORT INFORMATION
  Report Type: 
  Country: None (occurrence: None)
  Receive Date: 20110420
  Receipt Date: 20110418
  Transmission Date: 20111010
  Serious: Yes (Other)
  Sender: FDA-Public Use
  Company Number: US-ROCHE-758142

PATIENT
  Sex: Female
  Weight: 61.2 kg

DRUGS (2)
  1. ACCUTANE [Suspect]
     Route: 065
     Dates: start: 19990801, end: 20000401
  2. ACCUTANE [Suspect]
     Indication: ACNE
     Route: 065
     Dates: start: 19981101, end: 19990301

REACTIONS (5)
  - PULMONARY EMBOLISM [None]
  - ILEUS [None]
  - COLITIS ULCERATIVE [None]
  - DEPRESSION [None]
  - IRRITABLE BOWEL SYNDROME [None]
